FAERS Safety Report 7989091-9 (Version None)
Quarter: 2011Q4

REPORT INFORMATION
  Report Type: 
  Country: None (occurrence: None)
  Receive Date: 20111219
  Receipt Date: 20111207
  Transmission Date: 20120403
  Serious: Yes (Hospitalization)
  Sender: FDA-Public Use
  Company Number: FR-US-EMD SERONO, INC.-7087590

PATIENT
  Sex: Female
  Weight: 68.4 kg

DRUGS (3)
  1. REBIF [Suspect]
     Route: 058
     Dates: end: 20111004
  2. REBIF [Suspect]
     Route: 058
     Dates: start: 20111004, end: 20111006
  3. REBIF [Suspect]
     Indication: MULTIPLE SCLEROSIS
     Dosage: TITRATION PERFORMED
     Route: 058
     Dates: start: 20110801

REACTIONS (6)
  - INJECTION SITE PRURITUS [None]
  - RENAL FAILURE ACUTE [None]
  - TRANSAMINASES INCREASED [None]
  - INJECTION SITE ERYTHEMA [None]
  - NEPHROTIC SYNDROME [None]
  - NAUSEA [None]
